FAERS Safety Report 8345682-7 (Version None)
Quarter: 2012Q2

REPORT INFORMATION
  Report Type: 
  Country: None (occurrence: None)
  Receive Date: 20120508
  Receipt Date: 20120504
  Transmission Date: 20120825
  Serious: Yes (Death, Hospitalization)
  Sender: FDA-Public Use
  Company Number: US-ROCHE-1057159

PATIENT
  Sex: Male

DRUGS (24)
  1. PRAMOSONE [Concomitant]
     Dates: start: 20090811
  2. FISH OIL [Concomitant]
     Dates: start: 20111019
  3. FERROUS SULFATE TAB [Concomitant]
     Dates: start: 20111019
  4. HYDROXYZINE [Concomitant]
     Dates: start: 20110404
  5. THYROID TAB [Concomitant]
     Dates: start: 20110806
  6. ZOFRAN [Concomitant]
     Dates: start: 20110806
  7. SPIRIVA [Concomitant]
     Dates: start: 20110804
  8. PREDNISONE TAB [Suspect]
     Indication: RENAL TRANSPLANT
     Dates: start: 20111005
  9. ADVAIR DISKUS 100/50 [Concomitant]
     Dates: start: 20110806
  10. AMLACTIN [Concomitant]
     Dates: start: 20070223
  11. INSULIN [Concomitant]
     Dates: start: 20110803
  12. METOPROLOL TARTRATE [Concomitant]
     Dates: start: 20111012
  13. VITAMIN D [Concomitant]
     Dates: start: 20111019
  14. COUMADIN [Concomitant]
     Dates: start: 20111012
  15. MYCOPHENOLATE MOFETIL (CELLCEPT) [Suspect]
     Indication: RENAL TRANSPLANT
     Dates: start: 20110804
  16. DOCUSATE [Concomitant]
     Dates: start: 20110806
  17. CARVEDILOL [Concomitant]
     Dates: start: 20110806
  18. PREVACID [Concomitant]
     Dates: start: 20110804
  19. FUROSEMIDE [Concomitant]
     Dates: start: 20111019
  20. CYCLOSPORINE [Suspect]
     Indication: RENAL TRANSPLANT
     Route: 048
     Dates: start: 20110704
  21. NIZORAL [Concomitant]
     Dates: start: 20070223
  22. OXYGEN [Concomitant]
     Dates: start: 20020101
  23. ASPIRIN [Concomitant]
     Dates: start: 20110806
  24. ALPRAZOLAM [Concomitant]
     Dates: start: 20120203

REACTIONS (4)
  - ACUTE RESPIRATORY FAILURE [None]
  - ACUTE RESPIRATORY DISTRESS SYNDROME [None]
  - BLOOD CREATININE INCREASED [None]
  - CELLULITIS [None]
